FAERS Safety Report 9473074 (Version 1)
Quarter: 2013Q3

REPORT INFORMATION
  Report Type: Spontaneous
  Country: US (occurrence: US)
  Receive Date: 20130823
  Receipt Date: 20130823
  Transmission Date: 20140515
  Serious: No
  Sender: FDA-Public Use
  Company Number: US-BRISTOL-MYERS SQUIBB COMPANY-17404336

PATIENT
  Age: 59 Year
  Sex: Male
  Weight: 114.28 kg

DRUGS (9)
  1. SPRYCEL (CML) TABS 100 MG [Suspect]
     Indication: CHRONIC MYELOID LEUKAEMIA
     Dates: start: 20130216
  2. AMLODIPINE [Concomitant]
  3. ASPIRIN [Concomitant]
  4. BENAZEPRIL HCL [Concomitant]
  5. CYCLOBENZAPRINE [Concomitant]
  6. HYDROCODONE [Concomitant]
  7. METOPROLOL [Concomitant]
  8. PRAVASTATIN SODIUM [Concomitant]
  9. MVI [Concomitant]

REACTIONS (5)
  - Influenza like illness [Unknown]
  - Diarrhoea [Unknown]
  - Decreased appetite [Unknown]
  - Myalgia [Unknown]
  - Vomiting [Unknown]
